FAERS Safety Report 9920032 (Version 11)
Quarter: 2016Q3

REPORT INFORMATION
  Report Type: Spontaneous
  Country: US (occurrence: US)
  Receive Date: 20140224
  Receipt Date: 20160914
  Transmission Date: 20161109
  Serious: Yes (Hospitalization, Disabling, Other)
  Sender: FDA-Public Use
  Company Number: US-009507513-1402USA009378

PATIENT
  Sex: Female
  Weight: 77.1 kg

DRUGS (5)
  1. BONIVA [Suspect]
     Active Substance: IBANDRONATE SODIUM
     Indication: OSTEOPOROSIS
     Dosage: 150 MG, QD
     Route: 048
     Dates: start: 20060120, end: 20060817
  2. FOSAMAX PLUS D [Suspect]
     Active Substance: ALENDRONATE SODIUM\CHOLECALCIFEROL
     Dosage: UNK, UNKNOWN
     Route: 048
     Dates: start: 2000, end: 2008
  3. FOSAMAX [Suspect]
     Active Substance: ALENDRONATE SODIUM
     Indication: OSTEOPOROSIS
     Dosage: 70 MG, UNK
     Route: 048
     Dates: start: 200003, end: 200608
  4. FOSAMAX PLUS D [Suspect]
     Active Substance: ALENDRONATE SODIUM\CHOLECALCIFEROL
     Indication: OSTEOPOROSIS
     Dosage: 70 MG/2800 IU, QW
     Route: 048
     Dates: start: 20060818, end: 20080601
  5. RECLAST [Suspect]
     Active Substance: ZOLEDRONIC ACID
     Indication: OSTEOPOROSIS
     Dosage: 5 ML, UNK
     Route: 042
     Dates: start: 20080715, end: 20110506

REACTIONS (87)
  - Femur fracture [Unknown]
  - Hip arthroplasty [Unknown]
  - Tooth extraction [Unknown]
  - Fall [Unknown]
  - Balance disorder [Unknown]
  - Microcytic anaemia [Unknown]
  - Nephrolithiasis [Unknown]
  - Oophorectomy [Unknown]
  - Calcium deficiency [Unknown]
  - Dyspnoea [Unknown]
  - Macular fibrosis [Unknown]
  - Myalgia [Unknown]
  - Gallbladder disorder [Unknown]
  - Intramedullary rod insertion [Unknown]
  - Femur fracture [Unknown]
  - Tooth extraction [Unknown]
  - Intervertebral disc protrusion [Unknown]
  - Costochondritis [Unknown]
  - Pernicious anaemia [Unknown]
  - Herpes simplex [Unknown]
  - Hyperlipidaemia [Unknown]
  - Pain in extremity [Unknown]
  - Pain in extremity [Unknown]
  - Dysphagia [Unknown]
  - Fracture nonunion [Not Recovered/Not Resolved]
  - Femoral neck fracture [Not Recovered/Not Resolved]
  - Femur fracture [Unknown]
  - Intramedullary rod insertion [Unknown]
  - Haemorrhagic anaemia [Unknown]
  - Osteoarthritis [Unknown]
  - Osteoarthritis [Unknown]
  - Fall [Unknown]
  - Joint injury [Unknown]
  - Groin pain [Unknown]
  - Back pain [Not Recovered/Not Resolved]
  - Musculoskeletal pain [Unknown]
  - Constipation [Unknown]
  - Fall [Unknown]
  - Device failure [Unknown]
  - Nephrolithiasis [Unknown]
  - Tooth extraction [Unknown]
  - Angiopathy [Unknown]
  - Arthritis [Unknown]
  - Depression [Unknown]
  - Urinary tract infection [Recovered/Resolved]
  - Bursitis [Unknown]
  - Chest pain [Unknown]
  - Femur fracture [Unknown]
  - Bone trimming [Unknown]
  - Palpitations [Unknown]
  - Tooth extraction [Unknown]
  - Neck injury [Unknown]
  - Iron deficiency anaemia [Not Recovered/Not Resolved]
  - Hysterectomy [Unknown]
  - Increased tendency to bruise [Unknown]
  - Back pain [Unknown]
  - Urinary tract infection [Unknown]
  - Bone pain [Unknown]
  - Appendix disorder [Unknown]
  - Low turnover osteopathy [Not Recovered/Not Resolved]
  - Upper limb fracture [Unknown]
  - Vascular insufficiency [Unknown]
  - Joint dislocation [Unknown]
  - Anxiety [Unknown]
  - Malabsorption [Unknown]
  - Insomnia [Unknown]
  - Oropharyngeal pain [Unknown]
  - Varicose vein [Unknown]
  - Arthralgia [Not Recovered/Not Resolved]
  - Femur fracture [Unknown]
  - Open reduction of fracture [Unknown]
  - Fracture nonunion [Unknown]
  - Herpes zoster [Unknown]
  - Polyarthritis [Unknown]
  - Headache [Unknown]
  - Myalgia [Unknown]
  - Kyphosis [Unknown]
  - Foot fracture [Not Recovered/Not Resolved]
  - Cervical spinal stenosis [Unknown]
  - Hypertension [Unknown]
  - Vitamin D deficiency [Unknown]
  - Insomnia [Unknown]
  - Renal disorder [Unknown]
  - Vertigo positional [Unknown]
  - Nausea [Unknown]
  - Pruritus [Unknown]
  - Complication associated with device [Not Recovered/Not Resolved]

NARRATIVE: CASE EVENT DATE: 2000
